FAERS Safety Report 7692268-3 (Version None)
Quarter: 2011Q3

REPORT INFORMATION
  Report Type: 
  Country: None (occurrence: None)
  Receive Date: 20110818
  Receipt Date: 20110811
  Transmission Date: 20111222
  Serious: Yes (Hospitalization, Other)
  Sender: FDA-Public Use
  Company Number: JP-CEPHALON-2011004334

PATIENT
  Sex: Female
  Weight: 65 kg

DRUGS (18)
  1. SENNOSIDE [Concomitant]
  2. GRANISETRON HYDROCHLORIDE [Concomitant]
     Dates: start: 20110119, end: 20110210
  3. URSODIOL [Concomitant]
  4. SULFAMETHOXAZOLE AND TRIMETHOPRIM [Concomitant]
  5. ACYCLOVIR [Concomitant]
     Dates: start: 20110119
  6. FAMOTIDINE [Concomitant]
  7. AMPHOTERICIN B [Concomitant]
     Dates: start: 20110119
  8. POLYETHYLENE GLYCOL [Concomitant]
     Dates: start: 20110202, end: 20110202
  9. PYRIDOXAL PHOSPHATE [Concomitant]
     Dates: start: 20110131
  10. ADENOSINE TRIPHOSPHATE, DISODIUM SALT [Concomitant]
     Dates: start: 20110123
  11. MAGNESIUM OXIDE [Concomitant]
  12. POVIDONE IODINE [Concomitant]
     Dates: start: 20110126
  13. MOSAPRIDE CITRATE [Concomitant]
  14. AMLODIPINE BESYLATE [Concomitant]
  15. BENDAMUSTINE HCL [Suspect]
     Indication: B-CELL LYMPHOMA
     Route: 042
     Dates: start: 20110119, end: 20110303
  16. RITUXIMAB [Concomitant]
     Dates: start: 20110117, end: 20110228
  17. FLAVINE ADENINE DINUCLEOTIDE DISODIUM [Concomitant]
     Dates: start: 20110131
  18. PRAVASTATIN SODIUM [Concomitant]

REACTIONS (5)
  - WHITE BLOOD CELL COUNT DECREASED [None]
  - ANAEMIA [None]
  - PLATELET COUNT DECREASED [None]
  - NAUSEA [None]
  - AGRANULOCYTOSIS [None]
